FAERS Safety Report 11863619 (Version 1)
Quarter: 2015Q4

REPORT INFORMATION
  Report Type: Spontaneous
  Country: AT (occurrence: AT)
  Receive Date: 20151223
  Receipt Date: 20151223
  Transmission Date: 20160305
  Serious: Yes (Other)
  Sender: FDA-Public Use
  Company Number: AT-BAYER-2015-372323

PATIENT
  Sex: Female

DRUGS (2)
  1. JAYDESS [Suspect]
     Active Substance: LEVONORGESTREL
     Indication: DYSMENORRHOEA
     Dosage: 14 MCG/24HR, CONT
     Route: 015
     Dates: start: 20141002, end: 201506
  2. JAYDESS [Suspect]
     Active Substance: LEVONORGESTREL
     Indication: CONTRACEPTION

REACTIONS (3)
  - Pain [Not Recovered/Not Resolved]
  - Salpingo-oophoritis [None]
  - Ovarian cyst [Not Recovered/Not Resolved]
